FAERS Safety Report 9836841 (Version 1)
Quarter: 2013Q4

REPORT INFORMATION
  Report Type: Spontaneous
  Country: US (occurrence: None)
  Receive Date: 20131121
  Receipt Date: 20131121
  Transmission Date: 20140711
  Serious: Yes (Other)
  Sender: FDA-Public Use
  Company Number: 1000047959

PATIENT
  Age: 72 Year
  Sex: Female

DRUGS (6)
  1. TUDORZA PRESSAIR [Suspect]
     Indication: CHRONIC OBSTRUCTIVE PULMONARY DISEASE
     Route: 048
     Dates: start: 201306
  2. FUROSEMIDE(FUROSEMIDE)(FUROSEMIDE) [Concomitant]
  3. PREDNISONE(PREDNISONE)(PREDNISONE) [Concomitant]
  4. TUDORZA PRESSAIR (ACLIDINUM BROMIDE)(400 MICROGRAM, POWDER) [Concomitant]
     Indication: CHRONIC OBSTRUCTIVE PULMONARY DISEASE
     Route: 048
     Dates: start: 201306
  5. FUROSEMIDE(FUROSEMIDE)(FUROSEMIDE) [Concomitant]
  6. PREDNISONE(PREDNISONE)(PREDNISONE) [Concomitant]

REACTIONS (2)
  - Dyspnoea [None]
  - Drug ineffective [None]
